FAERS Safety Report 9950879 (Version 2)
Quarter: 2014Q1

REPORT INFORMATION
  Report Type: Report from Study
  Country: US (occurrence: US)
  Receive Date: 20140304
  Receipt Date: 20140304
  Transmission Date: 20141002
  Serious: No
  Sender: FDA-Public Use
  Company Number: US-ABBVIE-13P-163-1051097-00

PATIENT
  Sex: Female
  Weight: 90.8 kg

DRUGS (6)
  1. HUMIRA [Suspect]
     Indication: UVEITIS
     Route: 058
     Dates: start: 201302
  2. HUMIRA [Suspect]
     Indication: SARCOIDOSIS
  3. METOFORMIN [Concomitant]
     Indication: DIABETES MELLITUS
  4. UNKNOWN MEDICATIONS [Concomitant]
     Indication: HYPERTENSION
  5. UNKNOWN MEDICATIONS [Concomitant]
     Indication: HYPOTHYROIDISM
  6. MEDROL [Concomitant]
     Indication: UVEITIS

REACTIONS (2)
  - Off label use [Not Recovered/Not Resolved]
  - Off label use [Not Recovered/Not Resolved]
